FAERS Safety Report 7940127-0 (Version None)
Quarter: 2011Q4

REPORT INFORMATION
  Report Type: 
  Country: None (occurrence: None)
  Receive Date: 20111125
  Receipt Date: 20111114
  Transmission Date: 20120403
  Serious: Yes (Hospitalization)
  Sender: FDA-Public Use
  Company Number: US-ELI_LILLY_AND_COMPANY-US201011001592

PATIENT
  Sex: Female

DRUGS (2)
  1. FORTEO [Suspect]
     Dosage: 20 UG, DAILY (1/D)
     Route: 065
     Dates: end: 20111027
  2. FORTEO [Suspect]
     Indication: OSTEOPOROSIS
     Dosage: 20 UG, DAILY (1/D)
     Route: 065
     Dates: start: 20101001

REACTIONS (9)
  - FALL [None]
  - CONFUSIONAL STATE [None]
  - NASOPHARYNGITIS [None]
  - MEMORY IMPAIRMENT [None]
  - GRIP STRENGTH DECREASED [None]
  - CYSTITIS [None]
  - PNEUMONIA [None]
  - DIZZINESS [None]
  - PAIN IN JAW [None]
